FAERS Safety Report 9925382 (Version 2)
Quarter: 2014Q1

REPORT INFORMATION
  Report Type: Report from Study
  Country: CA (occurrence: CA)
  Receive Date: 20140226
  Receipt Date: 20140306
  Transmission Date: 20141002
  Serious: Yes (Hospitalization)
  Sender: FDA-Public Use
  Company Number: CA-JNJFOC-20140213558

PATIENT
  Age: 33 Year
  Sex: Male
  Weight: 90 kg

DRUGS (6)
  1. REMICADE [Suspect]
     Indication: CROHN^S DISEASE
     Route: 042
  2. REMICADE [Suspect]
     Indication: CROHN^S DISEASE
     Route: 042
     Dates: start: 20140224
  3. AMITRIPTYLINE [Concomitant]
     Route: 065
  4. TYLENOL [Concomitant]
     Route: 065
  5. METOPROLOL [Concomitant]
     Route: 065
  6. BACLOFEN [Concomitant]
     Route: 065

REACTIONS (1)
  - Condition aggravated [Unknown]
